FAERS Safety Report 5383925-2 (Version None)
Quarter: 2007Q3

REPORT INFORMATION
  Report Type: 
  Country: None (occurrence: None)
  Receive Date: 20070711
  Receipt Date: 20070629
  Transmission Date: 20080115
  Serious: Yes (Other)
  Sender: FDA-Public Use
  Company Number: US-JNJFOC-20070700381

PATIENT
  Sex: Female
  Weight: 72.58 kg

DRUGS (2)
  1. SUDAFED 12 HOUR [Suspect]
     Route: 065
  2. SUDAFED 12 HOUR [Suspect]
     Indication: RESPIRATORY TRACT INFECTION
     Route: 065

REACTIONS (4)
  - DIZZINESS [None]
  - HEADACHE [None]
  - OVERDOSE [None]
  - SPEECH DISORDER [None]
